FAERS Safety Report 14355353 (Version 4)
Quarter: 2018Q1

REPORT INFORMATION
  Report Type: Spontaneous
  Country: ES (occurrence: ES)
  Receive Date: 20180105
  Receipt Date: 20180301
  Transmission Date: 20180509
  Serious: Yes (Hospitalization, Other)
  Sender: FDA-Public Use
  Company Number: ES-ASTELLAS-2017US057172

PATIENT
  Age: 66 Year
  Sex: Male

DRUGS (28)
  1. CELLCEPT [Suspect]
     Active Substance: MYCOPHENOLATE MOFETIL\MYCOPHENOLATE MOFETIL HYDROCHLORIDE
     Indication: IMMUNOSUPPRESSION
     Dosage: 2 DF OF 500 MG, TWICE DAILY
     Route: 048
  2. CELLCEPT [Suspect]
     Active Substance: MYCOPHENOLATE MOFETIL\MYCOPHENOLATE MOFETIL HYDROCHLORIDE
     Dosage: 2 DF OF 500 MG 2 AT BREAKFAST AND 2 AT DINNER
     Route: 048
     Dates: start: 20170703
  3. ZITROMAX [Suspect]
     Active Substance: AZITHROMYCIN
     Dosage: 250 MG, ON L-X-V AT LUNCH
     Route: 048
     Dates: start: 20170801
  4. SEPTRIN [Suspect]
     Active Substance: SULFAMETHOXAZOLE\TRIMETHOPRIM
     Indication: ANTIFUNGAL PROPHYLAXIS
     Dosage: 1 DF (400 MG/80 MG), ONCE DAILY
     Route: 048
  5. PREDNISONE. [Suspect]
     Active Substance: PREDNISONE
     Dosage: 30 MG, ONCE DAILY AT BREAKFAST TIME
     Route: 048
  6. PREDNISONE. [Suspect]
     Active Substance: PREDNISONE
     Route: 048
  7. PARACETAMOL [Concomitant]
     Active Substance: ACETAMINOPHEN
     Indication: PRODUCT USED FOR UNKNOWN INDICATION
     Dosage: 500 MG, (2 AT BREAKFAST - 2 AT LUNCH - 2 AT DINNER)
     Route: 048
  8. LORAZEPAM. [Concomitant]
     Active Substance: LORAZEPAM
     Indication: PRODUCT USED FOR UNKNOWN INDICATION
     Route: 048
  9. PROGRAF [Suspect]
     Active Substance: TACROLIMUS\TACROLIMUS ANHYDROUS
     Dosage: 4.5 MG BEFORE BREAKFAST AND 4 MG BEFORE DINNER
     Route: 048
  10. PREDNISONE. [Suspect]
     Active Substance: PREDNISONE
     Dosage: 60 MG, ONCE DAILY (QD), 30 MG, 2X/DAY (AT BREAKFAST TIME)
     Route: 048
     Dates: start: 20170703, end: 2017
  11. ABELCET [Concomitant]
     Active Substance: AMPHOTERICIN B\DIMYRISTOYLPHOSPHATIDYLCHOLINE, DL-\DIMYRISTOYLPHOSPHATIDYLGLYCEROL, DL-
     Indication: PRODUCT USED FOR UNKNOWN INDICATION
     Dosage: 50 MG (HALF VIAL OF 100MG), ONCE WEEKLY (ON MONDAYS IN THE AFTERNOON)
     Route: 055
  12. PROGRAF [Suspect]
     Active Substance: TACROLIMUS\TACROLIMUS ANHYDROUS
     Indication: IMMUNOSUPPRESSION
     Dosage: 4.5 MG BEFORE BREAKFAST AND 4 MG BEFORE DINNER
     Route: 048
     Dates: start: 2017
  13. PROGRAF [Suspect]
     Active Substance: TACROLIMUS\TACROLIMUS ANHYDROUS
     Dosage: 5 MG, 2X/DAY TWICE DAILY (1  IN MORNING AND 1 BEFORE DINNER)
     Route: 048
     Dates: end: 20170704
  14. CELLCEPT [Suspect]
     Active Substance: MYCOPHENOLATE MOFETIL\MYCOPHENOLATE MOFETIL HYDROCHLORIDE
     Route: 048
     Dates: start: 2017
  15. ABELCET [Concomitant]
     Active Substance: AMPHOTERICIN B\DIMYRISTOYLPHOSPHATIDYLCHOLINE, DL-\DIMYRISTOYLPHOSPHATIDYLGLYCEROL, DL-
     Dosage: 1/2 VIAL OF 100 MG (ON MONDAYS IN THE AFTERNOON
     Route: 055
  16. VALCYTE [Suspect]
     Active Substance: VALGANCICLOVIR HYDROCHLORIDE
     Indication: ANTIVIRAL PROPHYLAXIS
     Dosage: 900 MG, ONCE DAILY (WITH LUNCH)
     Route: 048
  17. ZITROMAX [Suspect]
     Active Substance: AZITHROMYCIN
     Indication: IMMUNOMODULATORY THERAPY
     Dosage: 250 MG, EVERY OTHER DAY (1 DF ON LXV AT LUNCH/ EVERY 48 HOURS)
     Route: 048
  18. CELLCEPT [Suspect]
     Active Substance: MYCOPHENOLATE MOFETIL\MYCOPHENOLATE MOFETIL HYDROCHLORIDE
     Dosage: 1000 MG, 2X/DAY (BID), 500 MG, 4X/DAY (2 AT BREAKFAST AND 2 AT DINNER)
     Route: 048
     Dates: start: 20170703, end: 2017
  19. PROGRAF [Suspect]
     Active Substance: TACROLIMUS\TACROLIMUS ANHYDROUS
     Dosage: 10 MG (1 AT GET UP IN MORNING AND 1 BEFORE LUNCH)
     Route: 048
     Dates: start: 20170704
  20. PREDNISONE. [Suspect]
     Active Substance: PREDNISONE
     Route: 048
     Dates: start: 20170703
  21. OMEPRAZOLE. [Concomitant]
     Active Substance: OMEPRAZOLE
     Indication: PRODUCT USED FOR UNKNOWN INDICATION
     Dosage: 20 MG, ONCE DAILY (AT BREAKFAST)
     Route: 048
  22. VALCYTE [Suspect]
     Active Substance: VALGANCICLOVIR HYDROCHLORIDE
     Dosage: 450 MG, ONCE DAILY AT LUNCH TIME
     Route: 048
     Dates: start: 20170707
  23. ZITROMAX [Suspect]
     Active Substance: AZITHROMYCIN
     Dosage: UNK UNK, UNKNOWN FREQ.
     Route: 048
  24. PREDNISONE. [Suspect]
     Active Substance: PREDNISONE
     Route: 048
     Dates: start: 201701
  25. CALCIUM + VITAMIN D                /00944201/ [Concomitant]
     Active Substance: CALCIUM CARBONATE\CHOLECALCIFEROL
     Indication: PRODUCT USED FOR UNKNOWN INDICATION
     Dosage: 2 DF (500/400), ONCE DAILY
     Route: 048
  26. SEPTRIN [Suspect]
     Active Substance: SULFAMETHOXAZOLE\TRIMETHOPRIM
     Dosage: SULFAMETHOXAZOLE 400 MG]/TRIMETHOPRIM 80 MG AT LUNCH TIME
     Route: 048
     Dates: start: 20170707
  27. PREDNISONE. [Suspect]
     Active Substance: PREDNISONE
     Indication: IMMUNOSUPPRESSANT DRUG THERAPY
     Route: 048
     Dates: start: 2017
  28. DEXKETOPROFEN [Concomitant]
     Active Substance: DEXKETOPROFEN
     Indication: PRODUCT USED FOR UNKNOWN INDICATION
     Dosage: 25 MG, THRICE DAILY (1 AT BREAKFAST, 1 AT LUNCH, 1 AT DINNER ), AS NEEDED
     Route: 048

REACTIONS (9)
  - Hypoaesthesia [Unknown]
  - Large intestinal ulcer [Unknown]
  - Flank pain [Unknown]
  - Fatigue [Unknown]
  - Paraesthesia [Unknown]
  - Myalgia [Unknown]
  - Pyrexia [Unknown]
  - Bone pain [Unknown]
  - Gait disturbance [Unknown]

NARRATIVE: CASE EVENT DATE: 2017
